FAERS Safety Report 6044450-9 (Version None)
Quarter: 2009Q1

REPORT INFORMATION
  Report Type: 
  Country: None (occurrence: None)
  Receive Date: 20090120
  Receipt Date: 20090108
  Transmission Date: 20090719
  Serious: Yes (Death, Other)
  Sender: FDA-Public Use
  Company Number: US-PFIZER INC-2008013247

PATIENT
  Sex: Male
  Weight: 74.83 kg

DRUGS (6)
  1. LYRICA [Suspect]
     Indication: LUMBAR RADICULOPATHY
     Dosage: 75 MG, 1 TO 2 AT BEDTIME
     Dates: start: 20070925
  2. LYRICA [Suspect]
     Indication: MYOFASCIAL PAIN SYNDROME
  3. PERCOCET [Concomitant]
     Indication: PAIN
     Dosage: 5/325MG, 1 BY MOUTH AS NEEDED
     Route: 048
  4. DARVON [Concomitant]
     Indication: PAIN
     Dosage: 65 MG, 3X/DAY AS NEEDED
     Route: 048
  5. RESTORIL [Concomitant]
     Indication: INSOMNIA
     Dosage: 30 MG, AT BEDTIME AS NEEDED
     Route: 048
  6. DILANTIN [Concomitant]

REACTIONS (1)
  - MYOCARDIAL INFARCTION [None]
